FAERS Safety Report 19560597 (Version 3)
Quarter: 2021Q3

REPORT INFORMATION
  Report Type: Report from Study
  Country: DE (occurrence: DE)
  Receive Date: 20210715
  Receipt Date: 20210918
  Transmission Date: 20211014
  Serious: Yes (Death, Hospitalization)
  Sender: FDA-Public Use
  Company Number: DE-ROCHE-2857843

PATIENT
  Age: 69 Year
  Sex: Male
  Weight: 70 kg

DRUGS (32)
  1. CANDESARTAN. [Concomitant]
     Active Substance: CANDESARTAN
     Indication: HYPERTENSION
     Route: 048
     Dates: start: 20210119
  2. DECORTIN [Concomitant]
     Active Substance: PREDNISONE
     Route: 048
     Dates: start: 20210518, end: 20210607
  3. PANTOPRAZOLE [Concomitant]
     Active Substance: PANTOPRAZOLE
     Route: 048
     Dates: start: 20210406, end: 20210420
  4. METHYLPREDNISOLONE. [Concomitant]
     Active Substance: METHYLPREDNISOLONE
     Route: 042
     Dates: start: 20210625
  5. CIPROFLOXACIN. [Concomitant]
     Active Substance: CIPROFLOXACIN
     Route: 048
     Dates: start: 20210629, end: 20210707
  6. METOPROLOL. [Concomitant]
     Active Substance: METOPROLOL
     Indication: ATRIAL FIBRILLATION
     Route: 048
     Dates: start: 20170101
  7. FENISTIL [Concomitant]
     Active Substance: DIMETHINDENE
     Indication: PALMAR-PLANTAR ERYTHRODYSAESTHESIA SYNDROME
     Route: 062
     Dates: start: 20210406, end: 20210409
  8. SEVELAMER [Concomitant]
     Active Substance: SEVELAMER
     Route: 048
     Dates: start: 20210626
  9. DECORTIN [Concomitant]
     Active Substance: PREDNISONE
     Route: 048
     Dates: start: 20210413, end: 20210416
  10. BICANORM [Concomitant]
     Active Substance: SODIUM BICARBONATE
     Indication: NEPHRITIS
     Route: 048
     Dates: start: 20210622
  11. PROTOPIC [Concomitant]
     Active Substance: TACROLIMUS
     Indication: PALMAR-PLANTAR ERYTHRODYSAESTHESIA SYNDROME
     Route: 062
     Dates: start: 20210409, end: 20210412
  12. RAMIPRIL. [Concomitant]
     Active Substance: RAMIPRIL
     Indication: HYPERTENSION
     Route: 048
     Dates: start: 20170101
  13. ELIQUIS [Concomitant]
     Active Substance: APIXABAN
     Indication: ATRIAL FIBRILLATION
     Route: 048
     Dates: start: 20170101
  14. URBASON [Concomitant]
     Active Substance: METHYLPREDNISOLONE
     Indication: PALMAR-PLANTAR ERYTHRODYSAESTHESIA SYNDROME
     Route: 048
     Dates: start: 20210503, end: 20210513
  15. METHYLPREDNISOLONE. [Concomitant]
     Active Substance: METHYLPREDNISOLONE
     Indication: NEPHRITIS
     Route: 042
     Dates: start: 20210622, end: 20210701
  16. THIAMAZOL [Concomitant]
     Active Substance: METHIMAZOLE
     Indication: DECREASED APPETITE
  17. THIAMAZOL [Concomitant]
     Active Substance: METHIMAZOLE
     Indication: WEIGHT DECREASED
  18. L?THYROXIN [Concomitant]
     Active Substance: LEVOTHYROXINE SODIUM
     Indication: HYPOTHYROIDISM
     Route: 048
     Dates: start: 20210617
  19. PANTOPRAZOL [Concomitant]
     Active Substance: PANTOPRAZOLE SODIUM
     Route: 048
     Dates: start: 20210413
  20. CABOZANTINIB [Suspect]
     Active Substance: CABOZANTINIB
     Indication: RENAL CELL CARCINOMA
     Dosage: ON 26/APR/2021, HE RECEIVED MOST RECENT DOSE OF CABOZANTINIB (20 MG) PRIOR TO ONSET OF ADVERSE EVENT
     Route: 048
     Dates: start: 20201222
  21. IBUPROFEN. [Concomitant]
     Active Substance: IBUPROFEN
     Indication: PALMAR-PLANTAR ERYTHRODYSAESTHESIA SYNDROME
     Route: 048
     Dates: start: 20210406, end: 20210409
  22. AMIODARON [Concomitant]
     Active Substance: AMIODARONE
     Route: 042
     Dates: start: 20210727, end: 20210728
  23. CANDESARTAN. [Concomitant]
     Active Substance: CANDESARTAN
     Route: 048
     Dates: start: 20210626
  24. ATEZOLIZUMAB. [Suspect]
     Active Substance: ATEZOLIZUMAB
     Indication: RENAL CELL CARCINOMA
     Dosage: ON 06/APR/2021, HE RECEIVED MOST RECENT DOSE OF ATEZOLIZUMAB (1200 MG) PRIOR TO ONSET OF ELEVATED CR
     Route: 041
     Dates: start: 20201222
  25. DECORTIN [Concomitant]
     Active Substance: PREDNISONE
     Indication: NEPHRITIS
     Route: 048
     Dates: start: 20210419, end: 20210420
  26. DECORTIN [Concomitant]
     Active Substance: PREDNISONE
     Route: 048
     Dates: start: 20210608, end: 20210616
  27. DECORTIN [Concomitant]
     Active Substance: PREDNISONE
     Route: 048
     Dates: start: 20210617, end: 20210621
  28. AMIODARON [Concomitant]
     Active Substance: AMIODARONE
     Indication: HYPERTENSION
     Route: 048
     Dates: start: 20210701
  29. VANCOMYCIN [Concomitant]
     Active Substance: VANCOMYCIN
     Route: 042
     Dates: start: 20210728
  30. DECORTIN [Concomitant]
     Active Substance: PREDNISONE
     Indication: PALMAR-PLANTAR ERYTHRODYSAESTHESIA SYNDROME
     Route: 048
     Dates: start: 20210417, end: 20210418
  31. THIAMAZOL [Concomitant]
     Active Substance: METHIMAZOLE
     Indication: FATIGUE
     Route: 048
     Dates: start: 20210310, end: 20210406
  32. AMLODIPIN [Concomitant]
     Active Substance: AMLODIPINE BESYLATE
     Indication: HYPERTENSION
     Route: 048
     Dates: start: 20210626

REACTIONS (1)
  - Blood creatinine increased [Not Recovered/Not Resolved]

NARRATIVE: CASE EVENT DATE: 20210427
